FAERS Safety Report 10911797 (Version 1)
Quarter: 2015Q1

REPORT INFORMATION
  Report Type: Spontaneous
  Country: US (occurrence: None)
  Receive Date: 20150309
  Receipt Date: 20150309
  Transmission Date: 20150721
  Serious: No
  Sender: FDA-Public Use
  Company Number: None

PATIENT
  Age: 47 Year
  Sex: Female

DRUGS (10)
  1. AMPYRA [Suspect]
     Active Substance: DALFAMPRIDINE
     Indication: MULTIPLE SCLEROSIS
     Route: 048
     Dates: start: 201312, end: 201401
  2. MOTRIN [Concomitant]
     Active Substance: IBUPROFEN
  3. DIAZEPAM. [Concomitant]
     Active Substance: DIAZEPAM
  4. CITALOPRAM [Concomitant]
     Active Substance: CITALOPRAM HYDROBROMIDE
  5. HYDROCODONE/APAP [Concomitant]
     Active Substance: ACETAMINOPHEN\HYDROCODONE
  6. TEMAZEPAM. [Concomitant]
     Active Substance: TEMAZEPAM
  7. AMPYRA [Concomitant]
     Active Substance: DALFAMPRIDINE
  8. PREDNISONE. [Concomitant]
     Active Substance: PREDNISONE
  9. FLONASAE [Concomitant]
  10. ZOLPIDEM [Concomitant]
     Active Substance: ZOLPIDEM\ZOLPIDEM TARTRATE

REACTIONS (1)
  - Drug ineffective [None]

NARRATIVE: CASE EVENT DATE: 20140210
